FAERS Safety Report 5972554-5 (Version None)
Quarter: 2008Q4

REPORT INFORMATION
  Report Type: 
  Country: None (occurrence: None)
  Receive Date: 20081201
  Receipt Date: 20081125
  Transmission Date: 20090506
  Serious: Yes (Other)
  Sender: FDA-Public Use
  Company Number: B0547711A

PATIENT
  Age: 54 Year
  Sex: Male
  Weight: 77 kg

DRUGS (6)
  1. FLOLAN [Suspect]
     Route: 042
     Dates: start: 20081111, end: 20081112
  2. FLUOXETINE [Concomitant]
  3. NAFTIDROFURYL OXALATE [Concomitant]
  4. AMLODIPINE [Concomitant]
  5. ATORVASTATIN [Concomitant]
  6. HUMALOG [Concomitant]

REACTIONS (5)
  - ATRIAL FIBRILLATION [None]
  - BRADYCARDIA [None]
  - HYPERHIDROSIS [None]
  - HYPOTENSION [None]
  - VOMITING [None]
